FAERS Safety Report 7350680-6 (Version None)
Quarter: 2011Q1

REPORT INFORMATION
  Report Type: 
  Country: None (occurrence: None)
  Receive Date: 20110314
  Receipt Date: 20110303
  Transmission Date: 20110831
  Serious: Yes (Hospitalization, Other)
  Sender: FDA-Public Use
  Company Number: US-ASTRAZENECA-2011SE12304

PATIENT
  Age: 71 Year
  Sex: Female
  Weight: 79.4 kg

DRUGS (22)
  1. SEROQUEL [Suspect]
     Route: 048
     Dates: end: 20100101
  2. TOPAMAX [Concomitant]
     Indication: BIPOLAR DISORDER
  3. SEROQUEL [Suspect]
     Route: 048
     Dates: start: 20100101
  4. SEROQUEL [Suspect]
     Route: 048
  5. FISH OIL [Concomitant]
  6. NEXIUM [Suspect]
     Indication: PROPHYLAXIS AGAINST GASTROINTESTINAL ULCER
     Route: 048
     Dates: start: 20050101
  7. SEROQUEL [Suspect]
     Route: 048
     Dates: end: 20100101
  8. KLONOPIN [Concomitant]
     Indication: BIPOLAR DISORDER
  9. ESTRADIOL [Concomitant]
     Indication: HORMONE THERAPY
  10. SYNTHROID [Concomitant]
     Indication: THYROID THERAPY
  11. SEROQUEL [Suspect]
     Route: 048
     Dates: start: 20080101
  12. LASIX [Concomitant]
  13. STOOL SOFTENER [Concomitant]
     Dosage: DAILY
  14. SEROQUEL [Suspect]
     Indication: BIPOLAR DISORDER
     Route: 048
     Dates: start: 20070101
  15. SEROQUEL [Suspect]
     Route: 048
     Dates: start: 20100101
  16. TRAMADOL [Concomitant]
     Indication: ARTHRITIS
  17. ASPIRIN [Concomitant]
  18. SEROQUEL [Suspect]
     Route: 048
     Dates: start: 20080101
  19. SEROQUEL [Suspect]
     Route: 048
  20. SEROQUEL [Suspect]
     Indication: SLEEP DISORDER
     Route: 048
     Dates: start: 20070101
  21. TRICOR [Concomitant]
     Indication: HYPERCHOLESTEROLAEMIA
  22. LIPITOR [Concomitant]
     Indication: HYPERCHOLESTEROLAEMIA

REACTIONS (11)
  - MANIA [None]
  - FATIGUE [None]
  - THERAPY REGIMEN CHANGED [None]
  - STENT PLACEMENT [None]
  - SOMNOLENCE [None]
  - DRUG DOSE OMISSION [None]
  - INSOMNIA [None]
  - DECREASED APPETITE [None]
  - BIPOLAR DISORDER [None]
  - EATING DISORDER SYMPTOM [None]
  - WEIGHT DECREASED [None]
